FAERS Safety Report 4532390-3 (Version None)
Quarter: 2004Q4

REPORT INFORMATION
  Report Type: 
  Country: None (occurrence: None)
  Receive Date: 20041217
  Receipt Date: 20041210
  Transmission Date: 20050328
  Serious: Yes (Hospitalization, Other)
  Sender: FDA-Public Use
  Company Number: KII-2004-0014246

PATIENT
  Age: 38 Year
  Sex: Male

DRUGS (2)
  1. OXYCONTIN [Suspect]
     Dosage: SEE TEXT, ORAL
     Route: 048
  2. BENZODIAZEPINE DERIVATES [Suspect]
     Dosage: SEE TEXT, ORAL
     Route: 048

REACTIONS (21)
  - BLOOD PH INCREASED [None]
  - BRONCHIAL OBSTRUCTION [None]
  - CHROMATURIA [None]
  - COMA [None]
  - COMPLETED SUICIDE [None]
  - DEPRESSED LEVEL OF CONSCIOUSNESS [None]
  - ELECTROENCEPHALOGRAM ABNORMAL [None]
  - HEART RATE INCREASED [None]
  - INCREASED BRONCHIAL SECRETION [None]
  - MULTIPLE DRUG OVERDOSE INTENTIONAL [None]
  - MYDRIASIS [None]
  - NEUROLOGICAL EXAMINATION ABNORMAL [None]
  - OCULOCEPHALOGYRIC REFLEX ABSENT [None]
  - PCO2 DECREASED [None]
  - PNEUMONIA ASPIRATION [None]
  - PUPILLARY REFLEX IMPAIRED [None]
  - PYREXIA [None]
  - RESPIRATORY RATE INCREASED [None]
  - SEDATION [None]
  - URINE OUTPUT DECREASED [None]
  - VOMITING [None]
